FAERS Safety Report 19140525 (Version 2)
Quarter: 2021Q2

REPORT INFORMATION
  Report Type: Spontaneous
  Country: US (occurrence: US)
  Receive Date: 20210415
  Receipt Date: 20210429
  Transmission Date: 20210717
  Serious: No
  Sender: FDA-Public Use
  Company Number: US-PFIZER INC-2021319923

PATIENT
  Age: 53 Year
  Sex: Female

DRUGS (2)
  1. IBRANCE [Suspect]
     Active Substance: PALBOCICLIB
     Dosage: 125 MG
     Dates: start: 20210226
  2. IBRANCE [Suspect]
     Active Substance: PALBOCICLIB
     Dosage: 100 MG

REACTIONS (6)
  - Chapped lips [Unknown]
  - Rash [Recovered/Resolved]
  - Stomatitis [Unknown]
  - Neutrophil count decreased [Unknown]
  - COVID-19 [Unknown]
  - Oral discomfort [Unknown]

NARRATIVE: CASE EVENT DATE: 2021
